FAERS Safety Report 6923459-4 (Version None)
Quarter: 2010Q3

REPORT INFORMATION
  Report Type: 
  Country: None (occurrence: None)
  Receive Date: 20100813
  Receipt Date: 20100804
  Transmission Date: 20110219
  Serious: Yes (Other)
  Sender: FDA-Public Use
  Company Number: US-JNJFOC-20100801924

PATIENT
  Sex: Male

DRUGS (4)
  1. REMICADE [Suspect]
     Indication: HIDRADENITIS
     Route: 042
  2. BENADRYL [Concomitant]
     Indication: PREMEDICATION
  3. ACETAMINOPHEN [Concomitant]
     Indication: PREMEDICATION
  4. ANTIBIOTICS [Concomitant]
     Indication: HIDRADENITIS

REACTIONS (3)
  - CHILLS [None]
  - HYPERTENSION [None]
  - INFUSION RELATED REACTION [None]
